FAERS Safety Report 6449809-3 (Version None)
Quarter: 2009Q4

REPORT INFORMATION
  Report Type: 
  Country: None (occurrence: None)
  Receive Date: 20091120
  Receipt Date: 20090320
  Transmission Date: 20100525
  Serious: Yes (Other)
  Sender: FDA-Public Use
  Company Number: US-AMGEN-QUU336914

PATIENT
  Sex: Male
  Weight: 81.7 kg

DRUGS (3)
  1. ENBREL [Suspect]
     Indication: PSORIASIS
     Route: 058
     Dates: start: 20050101
  2. HUMIRA [Concomitant]
  3. RAPTIVA [Concomitant]

REACTIONS (3)
  - HEPATITIS C [None]
  - SWELLING FACE [None]
  - THERAPEUTIC RESPONSE DECREASED [None]
